FAERS Safety Report 10183438 (Version 2)
Quarter: 2014Q2

REPORT INFORMATION
  Report Type: Spontaneous
  Country: CH (occurrence: CH)
  Receive Date: 20140520
  Receipt Date: 20140520
  Transmission Date: 20141212
  Serious: Yes (Life-Threatening, Hospitalization)
  Sender: FDA-Public Use
  Company Number: CH-ASTRAZENECA-2014SE32853

PATIENT
  Age: 38 Year
  Sex: Female

DRUGS (4)
  1. SEROQUEL [Suspect]
     Indication: DEPRESSION
     Route: 048
     Dates: end: 20140118
  2. CYMBALTA [Concomitant]
     Route: 048
  3. TEMESTA [Concomitant]
     Route: 048
  4. PANTOZOL [Concomitant]
     Route: 048

REACTIONS (7)
  - Nausea [Unknown]
  - Abdominal pain upper [Unknown]
  - Agranulocytosis [Recovered/Resolved]
  - Thrombocytopenia [Recovered/Resolved]
  - Constipation [Unknown]
  - Vomiting [Unknown]
  - Viral upper respiratory tract infection [Unknown]
